FAERS Safety Report 5095807-4 (Version None)
Quarter: 2006Q3

REPORT INFORMATION
  Report Type: 
  Country: None (occurrence: None)
  Receive Date: 20060905
  Receipt Date: 20060824
  Transmission Date: 20061208
  Serious: Yes (Hospitalization)
  Sender: FDA-Public Use
  Company Number: BR-JNJFOC-20060805730

PATIENT
  Age: 41 Year
  Sex: Male
  Weight: 67 kg

DRUGS (5)
  1. HALDOL [Suspect]
     Indication: MENTAL DISORDER
     Route: 048
  2. HALOPERIDOL DECANOATE [Suspect]
     Indication: DRUG USE FOR UNKNOWN INDICATION
  3. CHLORPROMAZINE [Concomitant]
  4. FENERGAN [Concomitant]
     Indication: ADVERSE DRUG REACTION
  5. DIAZEPAM [Concomitant]
     Indication: SLEEP DISORDER THERAPY

REACTIONS (4)
  - HOSPITALISATION [None]
  - INSOMNIA [None]
  - NERVOUSNESS [None]
  - WEIGHT INCREASED [None]
